FAERS Safety Report 22394929 (Version 1)
Quarter: 2023Q2

REPORT INFORMATION
  Report Type: Spontaneous
  Country: US (occurrence: US)
  Receive Date: 20230601
  Receipt Date: 20230601
  Transmission Date: 20230722
  Serious: Yes (Hospitalization)
  Sender: FDA-Public Use
  Company Number: US-APIL-2311808US

PATIENT
  Age: 20 Year
  Sex: Female

DRUGS (1)
  1. VRAYLAR [Suspect]
     Active Substance: CARIPRAZINE
     Indication: Major depression
     Dates: start: 20230403

REACTIONS (2)
  - Vision blurred [Not Recovered/Not Resolved]
  - Tardive dyskinesia [Unknown]
